FAERS Safety Report 24023602 (Version 2)
Quarter: 2024Q4

REPORT INFORMATION
  Report Type: Report from Study
  Country: CO (occurrence: CO)
  Receive Date: 20240627
  Receipt Date: 20241017
  Transmission Date: 20250115
  Serious: Yes (Hospitalization, Other)
  Sender: ABBVIE
  Company Number: CO-ABBVIE-5816258

PATIENT
  Age: 60 Year
  Sex: Male
  Weight: 94 kg

DRUGS (1)
  1. SKYRIZI [Suspect]
     Active Substance: RISANKIZUMAB-RZAA
     Indication: Psoriasis
     Dosage: FORM STRENGTH: 150 MILLIGRAM
     Route: 058
     Dates: start: 20210408

REACTIONS (5)
  - Tibia fracture [Recovering/Resolving]
  - Stress [Recovering/Resolving]
  - Psoriasis [Recovering/Resolving]
  - Weight decreased [Recovering/Resolving]
  - Fibula fracture [Recovering/Resolving]

NARRATIVE: CASE EVENT DATE: 20240501
